FAERS Safety Report 14954384 (Version 2)
Quarter: 2018Q2

REPORT INFORMATION
  Report Type: Spontaneous
  Country: FR (occurrence: FR)
  Receive Date: 20180530
  Receipt Date: 20180629
  Transmission Date: 20180711
  Serious: Yes (Other)
  Sender: FDA-Public Use
  Company Number: FR-ALLERGAN-1828209US

PATIENT
  Age: 0 Day
  Sex: Female
  Weight: 1.34 kg

DRUGS (3)
  1. DIPRIVAN [Suspect]
     Active Substance: PROPOFOL
     Indication: SEDATION
     Dosage: 0.3 MG/KG, QD
     Route: 042
  2. ATROPINE UNK [Suspect]
     Active Substance: ATROPINE SULFATE
     Indication: SEDATION
     Dosage: 1 DF, QD
     Route: 065
  3. CUROSURF [Suspect]
     Active Substance: PORACTANT ALFA
     Indication: NEONATAL RESPIRATORY DISTRESS SYNDROME
     Dosage: 179 MG/KG, QD
     Route: 007
     Dates: start: 20180420, end: 20180420

REACTIONS (3)
  - Infantile apnoea [Recovered/Resolved]
  - Neonatal hypoxia [Recovered/Resolved]
  - Off label use [Unknown]

NARRATIVE: CASE EVENT DATE: 20180420
